FAERS Safety Report 15959176 (Version 4)
Quarter: 2019Q1

REPORT INFORMATION
  Report Type: Report from Study
  Country: BR (occurrence: BR)
  Receive Date: 20190214
  Receipt Date: 20190321
  Transmission Date: 20190417
  Serious: Yes (Hospitalization, Other)
  Sender: FDA-Public Use
  Company Number: PHHY2019BR031712

PATIENT
  Age: 49 Year
  Sex: Male
  Weight: 83 kg

DRUGS (2)
  1. COSENTYX [Suspect]
     Active Substance: SECUKINUMAB
     Indication: PSORIATIC ARTHROPATHY
     Dosage: UNK UNK, QW
     Route: 058
     Dates: start: 20190117, end: 20190117
  2. ISONIAZID. [Suspect]
     Active Substance: ISONIAZID
     Indication: TUBERCULOSIS
     Dosage: UNK
     Route: 065

REACTIONS (6)
  - Gastritis [Not Recovered/Not Resolved]
  - Abdominal pain upper [Unknown]
  - Tuberculosis [Not Recovered/Not Resolved]
  - Insomnia [Recovering/Resolving]
  - Somnolence [Not Recovered/Not Resolved]
  - Polyneuropathy [Not Recovered/Not Resolved]

NARRATIVE: CASE EVENT DATE: 20190124
